FAERS Safety Report 17159671 (Version 1)
Quarter: 2019Q4

REPORT INFORMATION
  Report Type: Spontaneous
  Country: NL (occurrence: NL)
  Receive Date: 20191216
  Receipt Date: 20191216
  Transmission Date: 20200122
  Serious: Yes (Disabling, Other)
  Sender: FDA-Public Use
  Company Number: NL-FRESENIUS KABI-FK201913889

PATIENT
  Age: 53 Year
  Sex: Female

DRUGS (1)
  1. TRANEXAMIC ACID (MANUFACTURER UNKNOWN) [Suspect]
     Active Substance: TRANEXAMIC ACID
     Indication: PRODUCT USED FOR UNKNOWN INDICATION
     Dosage: UNKNOWN
     Route: 024

REACTIONS (6)
  - Muscular weakness [Unknown]
  - Wrong product administered [Not Recovered/Not Resolved]
  - Myoclonus [Unknown]
  - Back pain [Not Recovered/Not Resolved]
  - Haemodynamic instability [Unknown]
  - Spinal fracture [Recovered/Resolved with Sequelae]
